FAERS Safety Report 12537950 (Version 1)
Quarter: 2016Q3

REPORT INFORMATION
  Report Type: Spontaneous
  Country: GB (occurrence: GB)
  Receive Date: 20160707
  Receipt Date: 20160707
  Transmission Date: 20161109
  Serious: Yes (Disabling)
  Sender: FDA-Public Use
  Company Number: GB-MYLANLABS-2016M1027105

PATIENT

DRUGS (6)
  1. TERBINAFINE. [Suspect]
     Active Substance: TERBINAFINE
     Dosage: UNK
     Dates: start: 20160529
  2. BETAMETHASONE VALERATE. [Concomitant]
     Active Substance: BETAMETHASONE VALERATE
     Dosage: APPLY
     Dates: start: 20160331, end: 20160428
  3. TIMOLOL. [Concomitant]
     Active Substance: TIMOLOL
     Dates: start: 20151231
  4. ZEROCREAM [Concomitant]
     Dosage: APPLY TO BOTH LOWER LEGS
     Dates: start: 20160331, end: 20160428
  5. AMLODIPINE [Concomitant]
     Active Substance: AMLODIPINE BESYLATE
     Dosage: 1 DF, QD
     Dates: start: 20151231
  6. FLUCLOXACILLIN [Concomitant]
     Active Substance: FLUCLOXACILLIN
     Dates: start: 20160331, end: 20160407

REACTIONS (5)
  - Arthralgia [Recovered/Resolved]
  - Nausea [Recovered/Resolved]
  - Myalgia [Recovered/Resolved]
  - Gastrointestinal disorder [Recovered/Resolved]
  - Rash erythematous [Recovered/Resolved]

NARRATIVE: CASE EVENT DATE: 20160529
